FAERS Safety Report 15865518 (Version 1)
Quarter: 2019Q1

REPORT INFORMATION
  Report Type: Spontaneous
  Country: FR (occurrence: FR)
  Receive Date: 20190125
  Receipt Date: 20190125
  Transmission Date: 20190417
  Serious: Yes (Death, Hospitalization)
  Sender: FDA-Public Use
  Company Number: FR-009507513-1901FRA006508

PATIENT
  Age: 5 Month
  Sex: Male
  Weight: 7 kg

DRUGS (5)
  1. ADVIL [Suspect]
     Active Substance: IBUPROFEN
     Indication: RELAPSING FEVER
     Dosage: UNK
     Route: 048
     Dates: start: 20181025, end: 20181025
  2. PREVNAR 13 [Concomitant]
     Active Substance: PNEUMOCOCCAL 13-VALENT CONJUGATE VACCINE
     Dosage: UNK
     Route: 030
     Dates: start: 20180912
  3. PREVNAR 13 [Concomitant]
     Active Substance: PNEUMOCOCCAL 13-VALENT CONJUGATE VACCINE
     Indication: IMMUNISATION
     Dosage: UNK
     Route: 030
     Dates: start: 20180706
  4. CELESTENE (BETAMETHASONE) [Suspect]
     Active Substance: BETAMETHASONE
     Indication: LARYNGITIS
     Dosage: UNK
     Route: 048
     Dates: start: 20181031, end: 201811
  5. ASPEGIC (ACETYLSALICYLATE LYSINE) [Suspect]
     Active Substance: ASPIRIN DL-LYSINE
     Indication: RELAPSING FEVER
     Dosage: UNK
     Route: 048
     Dates: start: 20181024

REACTIONS (2)
  - Empyema [Fatal]
  - Meningitis pneumococcal [Fatal]

NARRATIVE: CASE EVENT DATE: 201811
